FAERS Safety Report 5521707-9 (Version None)
Quarter: 2007Q4

REPORT INFORMATION
  Report Type: 
  Country: None (occurrence: None)
  Receive Date: 20071120
  Receipt Date: 20071113
  Transmission Date: 20080405
  Serious: Yes (Life-Threatening, Hospitalization, Other)
  Sender: FDA-Public Use
  Company Number: PHFR2007GB03229

PATIENT
  Age: 60 Year
  Sex: Female

DRUGS (2)
  1. CLOZARIL [Suspect]
     Indication: SCHIZOPHRENIA
     Dosage: UNK, UNK
     Route: 048
     Dates: start: 19900831
  2. CLOZARIL [Suspect]
     Dosage: 600 MG, QD
     Route: 048

REACTIONS (2)
  - GASTROINTESTINAL CARCINOMA [None]
  - SURGERY [None]
